FAERS Safety Report 4881262-3 (Version None)
Quarter: 2005Q4

REPORT INFORMATION
  Report Type: 
  Country: None (occurrence: None)
  Receive Date: 20051212
  Receipt Date: 20051028
  Transmission Date: 20060501
  Serious: Yes (Hospitalization)
  Sender: FDA-Public Use
  Company Number: 2005-02240

PATIENT
  Age: 45 Year
  Sex: Female

DRUGS (9)
  1. VELCADE [Suspect]
     Dosage: 1.30 MG/M3
     Dates: start: 20051013, end: 20051023
  2. ATIVAN [Concomitant]
  3. KYTRIL [Concomitant]
  4. BENADRYL [Concomitant]
  5. EPOGEN [Concomitant]
  6. NEUPOGEN [Concomitant]
  7. DOXYCYCLINE [Concomitant]
  8. POTASSIUM CHLORIDE [Concomitant]
  9. TERCONAZOLE                       (TERCONAZOLE) [Concomitant]

REACTIONS (1)
  - HYPOTENSION [None]
